FAERS Safety Report 20069189 (Version 1)
Quarter: 2021Q4

REPORT INFORMATION
  Report Type: Spontaneous
  Country: US (occurrence: None)
  Receive Date: 20211113
  Receipt Date: 20211113
  Transmission Date: 20220303
  Serious: Yes (Hospitalization)
  Sender: FDA-Public Use
  Company Number: None

PATIENT
  Age: 51 Year
  Sex: Female
  Weight: 97.2 kg

DRUGS (1)
  1. BAMLANIVIMAB\ETESEVIMAB [Suspect]
     Active Substance: BAMLANIVIMAB\ETESEVIMAB
     Indication: COVID-19

REACTIONS (6)
  - Infusion related reaction [None]
  - Dyspnoea [None]
  - Back pain [None]
  - Hypoaesthesia oral [None]
  - Tachypnoea [None]
  - Hypersensitivity [None]

NARRATIVE: CASE EVENT DATE: 20211112
